FAERS Safety Report 6443335-3 (Version None)
Quarter: 2009Q4

REPORT INFORMATION
  Report Type: 
  Country: None (occurrence: None)
  Receive Date: 20091113
  Receipt Date: 20091103
  Transmission Date: 20100525
  Serious: Yes (Other)
  Sender: FDA-Public Use
  Company Number: 232443K08USA

PATIENT
  Age: 46 Year
  Sex: Female
  Weight: 91 kg

DRUGS (9)
  1. REBIF [Suspect]
     Indication: MULTIPLE SCLEROSIS
     Dosage: 44 WEEKS, 3 IN 1 WEEKS, SUBCUTANEOUS
     Route: 058
     Dates: start: 20040101, end: 20081101
  2. REBIF [Suspect]
     Indication: MULTIPLE SCLEROSIS
     Dosage: 44 WEEKS, 3 IN 1 WEEKS, SUBCUTANEOUS
     Route: 058
     Dates: start: 20081226, end: 20081201
  3. FLU SHOT (INFLUENZA VIRUS VACCINE POLYVALENT) [Concomitant]
  4. COLAZAL [Concomitant]
  5. CHLORDIAZEPOXIDE/CLINIDUM (CHLORDIAZEPOXIDE W/CLIIDINIUM ) [Concomitant]
  6. CELEXA [Concomitant]
  7. EXTRA STRENGTH TYLENOL [Concomitant]
  8. METHOTREXATE (METHOTREXATE/00113801) [Concomitant]
  9. TRI-EST/P/T/VP (HORMONES AND RELATED AGENTS) [Concomitant]

REACTIONS (13)
  - ABDOMINAL DISTENSION [None]
  - COGNITIVE DISORDER [None]
  - CONDITION AGGRAVATED [None]
  - CROHN'S DISEASE [None]
  - HEADACHE [None]
  - INFLUENZA [None]
  - INJECTION SITE ERYTHEMA [None]
  - INJECTION SITE PAIN [None]
  - INJECTION SITE WARMTH [None]
  - MIGRAINE [None]
  - PAIN [None]
  - RASH ERYTHEMATOUS [None]
  - RASH PRURITIC [None]
